FAERS Safety Report 4474653-6 (Version None)
Quarter: 2004Q4

REPORT INFORMATION
  Report Type: 
  Country: None (occurrence: None)
  Receive Date: 20041014
  Receipt Date: 20040917
  Transmission Date: 20050328
  Serious: Yes (Other)
  Sender: FDA-Public Use
  Company Number: PHNU2004DE03262

PATIENT
  Sex: Female
  Weight: 85 kg

DRUGS (2)
  1. GLEEVEC [Suspect]
     Indication: GASTROINTESTINAL STROMAL TUMOUR
     Dosage: 400 MG, QD
     Route: 048
     Dates: start: 20010411, end: 20030701
  2. GLEEVEC [Suspect]
     Dosage: 400 MG, BID
     Route: 048
     Dates: start: 20030701

REACTIONS (4)
  - AGEUSIA [None]
  - ANOSMIA [None]
  - EYE INFLAMMATION [None]
  - SICCA SYNDROME [None]
